FAERS Safety Report 25779926 (Version 1)
Quarter: 2025Q3

REPORT INFORMATION
  Report Type: Spontaneous
  Country: US (occurrence: None)
  Receive Date: 20250908
  Receipt Date: 20250908
  Transmission Date: 20251021
  Serious: Yes (Other)
  Sender: FDA-CTU
  Company Number: None

PATIENT
  Age: 56 Year
  Sex: Female

DRUGS (6)
  1. VEOZAH [Suspect]
     Active Substance: FEZOLINETANT
     Dosage: FREQUENCY : DAILY;?
     Route: 048
     Dates: start: 20250808, end: 20250829
  2. LEVOTHYROXINE [Concomitant]
     Active Substance: LEVOTHYROXINE
  3. JARDIANCE [Concomitant]
     Active Substance: EMPAGLIFLOZIN
  4. Metorprolol [Concomitant]
  5. MYRBETRIQ [Concomitant]
     Active Substance: MIRABEGRON
  6. ATORVASTATIN CALCIUM [Concomitant]
     Active Substance: ATORVASTATIN CALCIUM

REACTIONS (2)
  - Urticaria [None]
  - Rash pruritic [None]

NARRATIVE: CASE EVENT DATE: 20250901
